FAERS Safety Report 6371463-X (Version None)
Quarter: 2009Q3

REPORT INFORMATION
  Report Type: 
  Country: None (occurrence: None)
  Receive Date: 20090923
  Receipt Date: 20070727
  Transmission Date: 20100115
  Serious: Yes (Hospitalization, Other)
  Sender: FDA-Public Use
  Company Number: US-ASTRAZENECA-2007UW09611

PATIENT
  Age: 25093 Day
  Sex: Female
  Weight: 102.1 kg

DRUGS (39)
  1. SEROQUEL [Suspect]
     Indication: DEPRESSION
     Route: 048
     Dates: start: 20020304, end: 20051215
  2. SEROQUEL [Suspect]
     Indication: SLEEP DISORDER
     Route: 048
     Dates: start: 20020304, end: 20051215
  3. SEROQUEL [Suspect]
     Indication: ANXIETY
     Route: 048
     Dates: start: 20020304, end: 20051215
  4. SEROQUEL [Suspect]
     Indication: SCHIZOPHRENIA
     Route: 048
     Dates: start: 20020304, end: 20051215
  5. SEROQUEL [Suspect]
     Dosage: 25 MG - 75 MG
     Route: 048
     Dates: start: 20040202
  6. SEROQUEL [Suspect]
     Dosage: 25 MG - 75 MG
     Route: 048
     Dates: start: 20040202
  7. SEROQUEL [Suspect]
     Dosage: 25 MG - 75 MG
     Route: 048
     Dates: start: 20040202
  8. SEROQUEL [Suspect]
     Dosage: 25 MG - 75 MG
     Route: 048
     Dates: start: 20040202
  9. K-DUR [Concomitant]
  10. ELAVIL [Concomitant]
  11. PAXIL [Concomitant]
  12. ZAROXOLYN [Concomitant]
  13. PRILOSEC [Concomitant]
  14. SINEMET [Concomitant]
  15. DURAGESIC-100 [Concomitant]
  16. NEURONTIN [Concomitant]
  17. XANAX [Concomitant]
  18. LASIX [Concomitant]
  19. MORPHINE [Concomitant]
  20. LIDODERM [Concomitant]
  21. CYMBALTA [Concomitant]
  22. BUSPAR [Concomitant]
  23. ACEON [Concomitant]
  24. WELLBUTRIN [Concomitant]
  25. PROZAC [Concomitant]
  26. SILVADENE [Concomitant]
  27. PREVACID [Concomitant]
  28. PERCOCET [Concomitant]
  29. CELEXA [Concomitant]
  30. LORTAB [Concomitant]
  31. ALDACTONE [Concomitant]
  32. AMBIEN [Concomitant]
  33. COUMADIN [Concomitant]
  34. LOVENOX [Concomitant]
  35. LYRICA [Concomitant]
  36. NEXIUM [Concomitant]
  37. DEMEROL [Concomitant]
  38. ASPIRIN [Concomitant]
  39. ZESTRIL [Concomitant]

REACTIONS (1)
  - PANCREATITIS ACUTE [None]
